FAERS Safety Report 25657914 (Version 2)
Quarter: 2025Q3

REPORT INFORMATION
  Report Type: Spontaneous
  Country: CN (occurrence: CN)
  Receive Date: 20250808
  Receipt Date: 20250813
  Transmission Date: 20251021
  Serious: Yes (Hospitalization, Disabling, Other)
  Sender: Kenvue
  Company Number: CN-KENVUE-20250801142

PATIENT

DRUGS (3)
  1. IBUPROFEN [Suspect]
     Active Substance: IBUPROFEN
     Indication: Pyrexia
     Dosage: 2 MILLILITER, FOUR TIME A DAY
     Route: 048
     Dates: start: 20250719
  2. ACETAMINOPHEN\BOS TAURUS GALLSTONE\CHLORPHENIRAMINE MALEATE [Suspect]
     Active Substance: ACETAMINOPHEN\BOS TAURUS GALLSTONE\CHLORPHENIRAMINE MALEATE
     Indication: Pyrexia
     Dosage: 0.5 DOSAGE FORM (SACHET), THRICE A DAY
     Route: 048
     Dates: start: 20250720
  3. IBUPROFEN\ZINC GLUCONATE [Suspect]
     Active Substance: IBUPROFEN\ZINC GLUCONATE
     Indication: Pyrexia
     Dosage: 0.5 DOSAGE FORM (SACHET), THRICE A DAY
     Route: 048
     Dates: start: 20250722

REACTIONS (4)
  - Listless [Recovering/Resolving]
  - Incorrect dose administered [Unknown]
  - Gastrointestinal ulcer [Recovering/Resolving]
  - Gastrointestinal haemorrhage [Recovering/Resolving]

NARRATIVE: CASE EVENT DATE: 20250719
